FAERS Safety Report 7933935-3 (Version None)
Quarter: 2011Q4

REPORT INFORMATION
  Report Type: 
  Country: None (occurrence: None)
  Receive Date: 20111122
  Receipt Date: 20111118
  Transmission Date: 20120403
  Serious: Yes (Life-Threatening, Hospitalization, Other)
  Sender: FDA-Public Use
  Company Number: CA-JNJFOC-20111108966

PATIENT
  Age: 77 Year
  Sex: Male

DRUGS (7)
  1. PANTOPRAZOLE SODIUM [Concomitant]
  2. VITAMIN B-12 [Concomitant]
  3. ASPIRIN [Concomitant]
  4. COLACE [Concomitant]
  5. OXYCODONE HCL [Concomitant]
  6. XARELTO [Suspect]
     Indication: PRODUCT USED FOR UNKNOWN INDICATION
     Route: 065
  7. ACETAMINOPHEN [Concomitant]

REACTIONS (2)
  - INTRACRANIAL PRESSURE INCREASED [None]
  - HAEMORRHAGE INTRACRANIAL [None]
